FAERS Safety Report 6187173-8 (Version None)
Quarter: 2009Q2

REPORT INFORMATION
  Report Type: 
  Country: None (occurrence: None)
  Receive Date: 20090507
  Receipt Date: 20081119
  Transmission Date: 20091009
  Serious: Yes (Hospitalization)
  Sender: FDA-Public Use
  Company Number: 598257

PATIENT
  Age: 74 Year
  Sex: Male

DRUGS (1)
  1. NAPROSYN [Suspect]
     Indication: DRUG USE FOR UNKNOWN INDICATION
     Dates: start: 19900101

REACTIONS (2)
  - ANASTOMOTIC HAEMORRHAGE [None]
  - LARGE INTESTINAL HAEMORRHAGE [None]
